FAERS Safety Report 5318508-3 (Version None)
Quarter: 2007Q2

REPORT INFORMATION
  Report Type: 
  Country: None (occurrence: None)
  Receive Date: 20070501
  Receipt Date: 20070423
  Transmission Date: 20071010
  Serious: Yes (Death, Life-Threatening)
  Sender: FDA-Public Use
  Company Number: S07-UKI-01748-01

PATIENT
  Age: 50 Year
  Sex: Female

DRUGS (6)
  1. CAMPRAL [Suspect]
     Indication: ALCOHOLISM
     Dosage: 333 MG TID PO
     Route: 048
     Dates: start: 20070201
  2. DISULFIRAM [Suspect]
     Indication: ALCOHOLISM
     Dosage: 200 MG QD PO
     Route: 048
     Dates: start: 20070201
  3. LACTULOSE [Concomitant]
  4. SALBUTAMOL [Concomitant]
  5. SUCRALFATE [Concomitant]
  6. VITAMIN B [Concomitant]

REACTIONS (3)
  - CIRRHOSIS ALCOHOLIC [None]
  - HEPATITIS ACUTE [None]
  - LIVER DISORDER [None]
